FAERS Safety Report 22273459 (Version 1)
Quarter: 2023Q2

REPORT INFORMATION
  Report Type: Spontaneous
  Country: CL (occurrence: CL)
  Receive Date: 20230502
  Receipt Date: 20230502
  Transmission Date: 20230721
  Serious: Yes (Other)
  Sender: FDA-Public Use
  Company Number: CL-GLAXOSMITHKLINE-CL2023AMR043086

PATIENT

DRUGS (5)
  1. FLUTICASONE PROPIONATE\SALMETEROL XINAFOATE [Suspect]
     Active Substance: FLUTICASONE PROPIONATE\SALMETEROL XINAFOATE
     Indication: Product used for unknown indication
     Dosage: UNK
     Dates: start: 20220527
  2. RUPATADINE FUMARATE [Suspect]
     Active Substance: RUPATADINE FUMARATE
     Indication: Product used for unknown indication
     Dosage: UNK
  3. FLUTICASONE PROPIONATE\SALMETEROL XINAFOATE [Suspect]
     Active Substance: FLUTICASONE PROPIONATE\SALMETEROL XINAFOATE
     Indication: Product used for unknown indication
     Dosage: UNK
     Dates: start: 20220527
  4. FLUTICASONE FUROATE [Suspect]
     Active Substance: FLUTICASONE FUROATE
     Indication: Product used for unknown indication
     Dosage: UNK
  5. MONTELUKAST [Suspect]
     Active Substance: MONTELUKAST SODIUM
     Indication: Product used for unknown indication
     Dosage: UNK

REACTIONS (14)
  - Asthmatic crisis [Unknown]
  - Autism spectrum disorder [Unknown]
  - Rotavirus infection [Recovered/Resolved]
  - Respiratory symptom [Recovered/Resolved]
  - Abdominal discomfort [Unknown]
  - Hypersensitivity [Unknown]
  - Dyspnoea [Unknown]
  - Feeling of despair [Unknown]
  - Rhinitis allergic [Unknown]
  - Secretion discharge [Unknown]
  - Feeling abnormal [Unknown]
  - Disruptive mood dysregulation disorder [Unknown]
  - Product dose omission in error [Unknown]
  - Drug ineffective [Unknown]
